FAERS Safety Report 17843607 (Version 5)
Quarter: 2020Q2

REPORT INFORMATION
  Report Type: Report from Study
  Country: DE (occurrence: DE)
  Receive Date: 20200531
  Receipt Date: 20200621
  Transmission Date: 20200714
  Serious: Yes (Hospitalization, Other)
  Sender: FDA-Public Use
  Company Number: DE-AMGEN-DEUCT2020084386

PATIENT
  Age: 68 Year
  Sex: Female
  Weight: 60.3 kg

DRUGS (12)
  1. DEXAMETHASONE. [Suspect]
     Active Substance: DEXAMETHASONE
     Indication: PLASMA CELL MYELOMA
     Dosage: 28 MILLIGRAM, PER CHEMO REGIM
     Route: 048
     Dates: start: 20200212
  2. CANDESARTAN HEXAL [Concomitant]
     Active Substance: CANDESARTAN CILEXETIL
     Indication: HYPERTENSION
     Dosage: 8 MILLIGRAM, QD
     Route: 048
     Dates: start: 20200103
  3. DEXAMETHASONE. [Suspect]
     Active Substance: DEXAMETHASONE
     Dosage: 40 MILLIGRAM, PER CHEMO REGIM
     Route: 048
  4. COTRIM FORTE [Concomitant]
     Active Substance: SULFAMETHOXAZOLE\TRIMETHOPRIM
     Indication: INFECTION PROPHYLAXIS
     Dosage: 960 MILLIGRAM, QD
     Route: 048
     Dates: start: 20200212
  5. AMLODIPINE [Concomitant]
     Active Substance: AMLODIPINE BESYLATE
     Indication: HYPERTENSION
     Dosage: 5 MILLIGRAM, QD
     Route: 048
     Dates: start: 20200103
  6. TILIDIN COMP [Concomitant]
     Active Substance: NALOXONE HYDROCHLORIDE\TILIDINE HYDROCHLORIDE
     Indication: BACK PAIN
     Dosage: 100/8 MILLIGRAM, BID
     Route: 048
     Dates: start: 20200109
  7. ACICLOVIR [Concomitant]
     Active Substance: ACYCLOVIR
     Indication: PROPHYLAXIS
     Dosage: 400 MILLIGRAM, QD
     Route: 048
     Dates: start: 20200212
  8. CARFILZOMIB [Suspect]
     Active Substance: CARFILZOMIB
     Indication: PLASMA CELL MYELOMA
     Dosage: 20 MILLIGRAM/SQ. METER, PER CHEMO REGIM
     Route: 042
     Dates: start: 20200212, end: 20200609
  9. LENALIDOMIDE [Suspect]
     Active Substance: LENALIDOMIDE
     Indication: PLASMA CELL MYELOMA
     Dosage: 15 MILLIGRAM, PER CHEMO REGIM
     Route: 048
     Dates: start: 20200212
  10. CLEXANE [Concomitant]
     Active Substance: ENOXAPARIN SODIUM
     Indication: THROMBOSIS PROPHYLAXIS
     Dosage: 40 MILLIGRAM, QD
     Route: 058
     Dates: start: 20200203
  11. NOVAMINSULFON [Concomitant]
     Active Substance: METAMIZOLE
     Indication: BACK PAIN
     Dosage: 500 MILLIGRAM, QID
     Route: 048
     Dates: start: 20200203
  12. ELOTUZUMAB. [Suspect]
     Active Substance: ELOTUZUMAB
     Indication: PLASMA CELL MYELOMA
     Dosage: 615 MILLIGRAM, PER CHEMO REGIM
     Route: 042
     Dates: start: 20200212

REACTIONS (1)
  - Electrocardiogram T wave inversion [Recovered/Resolved]

NARRATIVE: CASE EVENT DATE: 20200520
